FAERS Safety Report 9556249 (Version 3)
Quarter: 2013Q4

REPORT INFORMATION
  Report Type: Report from Study
  Country: GR (occurrence: GR)
  Receive Date: 20130926
  Receipt Date: 20131001
  Transmission Date: 20140711
  Serious: Yes (Other)
  Sender: FDA-Public Use
  Company Number: PHHO2013GR006505

PATIENT
  Sex: 0

DRUGS (2)
  1. SOM230 [Suspect]
     Indication: CUSHING^S SYNDROME
     Dosage: 900 UG, BID
     Dates: start: 20130108, end: 20130327
  2. METFORMIN [Concomitant]
     Dosage: 850 MG, QD

REACTIONS (1)
  - Hyperglycaemia [Recovered/Resolved]
